FAERS Safety Report 7258623-0 (Version None)
Quarter: 2011Q1

REPORT INFORMATION
  Report Type: 
  Country: None (occurrence: None)
  Receive Date: 20110129
  Receipt Date: 20100830
  Transmission Date: 20110831
  Serious: No
  Sender: FDA-Public Use
  Company Number: US-ABBOTT-09P-163-0589509-00

PATIENT
  Sex: Female
  Weight: 83.99 kg

DRUGS (14)
  1. FOLIC ACID [Concomitant]
     Indication: PRODUCT USED FOR UNKNOWN INDICATION
     Route: 048
  2. VITAMIN D [Concomitant]
     Indication: VITAMIN SUPPLEMENTATION
  3. GLUMETZA [Concomitant]
     Indication: PRODUCT USED FOR UNKNOWN INDICATION
     Route: 048
  4. LEVOTHYROXINE SODIUM [Concomitant]
     Indication: PRODUCT USED FOR UNKNOWN INDICATION
  5. METOPROLOL [Concomitant]
     Indication: HYPERTENSION
     Route: 048
  6. HUMIRA [Suspect]
     Dates: start: 20090501
  7. LANOXIN [Concomitant]
     Indication: TACHYCARDIA
     Route: 048
  8. THYROID TAB [Concomitant]
     Indication: PRODUCT USED FOR UNKNOWN INDICATION
     Route: 048
  9. HUMIRA [Suspect]
     Indication: PSORIATIC ARTHROPATHY
     Route: 058
     Dates: start: 20080911, end: 20090101
  10. LORAZEPAM [Concomitant]
     Indication: ANXIETY
     Dosage: DAILY
  11. METHOTREXATE [Concomitant]
     Indication: RHEUMATOID ARTHRITIS
     Dosage: 2.5MG
     Route: 048
  12. VERAPAMIL [Concomitant]
     Indication: HEART RATE INCREASED
  13. PROTONIX [Concomitant]
     Indication: GASTRITIS
  14. PANTOPRAZOLE [Concomitant]
     Indication: PRODUCT USED FOR UNKNOWN INDICATION
     Route: 048

REACTIONS (11)
  - HOT FLUSH [None]
  - IRRITABILITY [None]
  - PANIC ATTACK [None]
  - AGGRESSION [None]
  - DEPRESSION [None]
  - ERYTHEMA [None]
  - PARAESTHESIA [None]
  - CARPAL TUNNEL SYNDROME [None]
  - MOOD ALTERED [None]
  - MOOD SWINGS [None]
  - NAUSEA [None]
